FAERS Safety Report 16207162 (Version 1)
Quarter: 2019Q2

REPORT INFORMATION
  Report Type: Spontaneous
  Country: US (occurrence: US)
  Receive Date: 20190417
  Receipt Date: 20190417
  Transmission Date: 20190711
  Serious: No
  Sender: FDA-Public Use
  Company Number: US-009507513-1904USA007796

PATIENT
  Sex: Female

DRUGS (2)
  1. IRON (UNSPECIFIED) [Concomitant]
     Active Substance: IRON
     Dosage: UNK
     Route: 065
  2. KEYTRUDA [Suspect]
     Active Substance: PEMBROLIZUMAB
     Dosage: 200MG EVERY 3 WEEKS
     Route: 065
     Dates: start: 201901

REACTIONS (3)
  - No adverse event [Unknown]
  - Maternal exposure during pregnancy [Unknown]
  - Exposure via body fluid [Unknown]
